FAERS Safety Report 7912645-2 (Version None)
Quarter: 2011Q4

REPORT INFORMATION
  Report Type: 
  Country: None (occurrence: None)
  Receive Date: 20111114
  Receipt Date: 20111102
  Transmission Date: 20120403
  Serious: Yes (Hospitalization)
  Sender: FDA-Public Use
  Company Number: JP-ROCHE-802767

PATIENT
  Sex: Female
  Weight: 65 kg

DRUGS (9)
  1. OMEPRAZOLE [Concomitant]
     Indication: PROPHYLAXIS
     Route: 048
     Dates: start: 20080301
  2. ALENDRONATE SODIUM [Concomitant]
     Indication: PROPHYLAXIS
     Route: 048
     Dates: start: 20090901
  3. PREDNISOLONE [Concomitant]
     Indication: RHEUMATOID ARTHRITIS
     Route: 048
  4. PREDNISOLONE [Concomitant]
     Route: 048
  5. ACTEMRA [Suspect]
     Indication: RHEUMATOID ARTHRITIS
     Dosage: 480- 536MG
     Route: 041
     Dates: start: 20090126, end: 20101124
  6. LOXONIN [Concomitant]
     Indication: RHEUMATOID ARTHRITIS
     Route: 048
     Dates: start: 20080501
  7. MUCOSTA [Concomitant]
     Indication: PROPHYLAXIS
     Route: 048
     Dates: start: 20080501
  8. ACTEMRA [Suspect]
     Route: 041
  9. PREDNISOLONE [Concomitant]
     Route: 048

REACTIONS (5)
  - VOMITING [None]
  - PYREXIA [None]
  - NAUSEA [None]
  - ABDOMINAL PAIN UPPER [None]
  - VIRAL INFECTION [None]
